FAERS Safety Report 6188651-8 (Version None)
Quarter: 2009Q2

REPORT INFORMATION
  Report Type: 
  Country: None (occurrence: None)
  Receive Date: 20090511
  Receipt Date: 20090511
  Transmission Date: 20091009
  Serious: Yes (Hospitalization)
  Sender: FDA-Public Use
  Company Number: None

PATIENT
  Age: 58 Year
  Sex: Male
  Weight: 102 kg

DRUGS (1)
  1. HALOPERIDOL [Suspect]
     Indication: SCHIZOPHRENIA, PARANOID TYPE
     Dosage: 150 MG ONCE IM
     Route: 030
     Dates: start: 20090331, end: 20090409

REACTIONS (5)
  - DYSTONIA [None]
  - MOVEMENT DISORDER [None]
  - MUSCLE SPASTICITY [None]
  - PAIN IN EXTREMITY [None]
  - TARDIVE DYSKINESIA [None]
